FAERS Safety Report 5063086-X (Version None)
Quarter: 2006Q3

REPORT INFORMATION
  Report Type: 
  Country: None (occurrence: None)
  Receive Date: 20060727
  Receipt Date: 20060723
  Transmission Date: 20061208
  Serious: Yes (Other)
  Sender: FDA-Public Use
  Company Number: BR-BRISTOL-MYERS SQUIBB COMPANY-13452388

PATIENT
  Age: 33 Year
  Sex: Male

DRUGS (1)
  1. TEQUIN [Suspect]
     Indication: PNEUMONIA
     Dates: start: 20060525

REACTIONS (4)
  - ABNORMAL SENSATION IN EYE [None]
  - CONJUNCTIVITIS [None]
  - EYE PAIN [None]
  - EYELID OEDEMA [None]
